FAERS Safety Report 11594223 (Version 1)
Quarter: 2015Q4

REPORT INFORMATION
  Report Type: Spontaneous
  Country: RU (occurrence: RU)
  Receive Date: 20151005
  Receipt Date: 20151005
  Transmission Date: 20160304
  Serious: Yes (Other)
  Sender: FDA-Public Use
  Company Number: RU-BAYER-2015-433778

PATIENT
  Age: 41 Year
  Sex: Female

DRUGS (1)
  1. MIRENA [Suspect]
     Active Substance: LEVONORGESTREL
     Indication: PREVENTION OF ENDOMETRIAL HYPERPLASIA
     Dosage: 20 MCG/24HR, CONT
     Route: 015

REACTIONS (2)
  - Myocardial infarction [None]
  - Product use issue [None]
